FAERS Safety Report 5299865-3 (Version None)
Quarter: 2007Q2

REPORT INFORMATION
  Report Type: 
  Country: None (occurrence: None)
  Receive Date: 20070417
  Receipt Date: 20070406
  Transmission Date: 20071010
  Serious: Yes (Other)
  Sender: FDA-Public Use
  Company Number: US-PFIZER INC-2007028186

PATIENT
  Sex: Male
  Weight: 65.8 kg

DRUGS (3)
  1. DILANTIN [Suspect]
     Indication: CONVULSION
     Dosage: DAILY DOSE:300MG
  2. COFFEE [Suspect]
  3. ALL OTHER NON-THERAPEUTIC PRODUCTS [Suspect]

REACTIONS (6)
  - CHOLECYSTECTOMY [None]
  - CONVULSION [None]
  - DYSPEPSIA [None]
  - GASTRECTOMY [None]
  - ILL-DEFINED DISORDER [None]
  - PAIN [None]
